FAERS Safety Report 17953425 (Version 4)
Quarter: 2020Q3

REPORT INFORMATION
  Report Type: Spontaneous
  Country: IT (occurrence: IT)
  Receive Date: 20200628
  Receipt Date: 20200721
  Transmission Date: 20201103
  Serious: Yes (Hospitalization, Other)
  Sender: FDA-Public Use
  Company Number: NVSC2020IT181458

PATIENT
  Age: 77 Year
  Sex: Female

DRUGS (1)
  1. METFORMIN HYDROCHLORIDE. [Suspect]
     Active Substance: METFORMIN HYDROCHLORIDE
     Indication: DIABETES MELLITUS
     Dosage: 0.5 DF, Q12H
     Route: 065

REACTIONS (7)
  - Wrong technique in product usage process [Unknown]
  - Lactic acidosis [Recovered/Resolved]
  - Acute kidney injury [Recovered/Resolved]
  - Coma [Recovered/Resolved]
  - Diarrhoea [Recovered/Resolved]
  - Contraindicated product administered [Not Recovered/Not Resolved]
  - Respiratory failure [Unknown]
